FAERS Safety Report 7029225-6 (Version None)
Quarter: 2010Q4

REPORT INFORMATION
  Report Type: 
  Country: None (occurrence: None)
  Receive Date: 20101005
  Receipt Date: 20100928
  Transmission Date: 20110411
  Serious: Yes (Death)
  Sender: FDA-Public Use
  Company Number: JP-ACTELION-A-CH2010-39809

PATIENT
  Age: 87 Year
  Sex: Female

DRUGS (3)
  1. TRACLEER [Suspect]
     Indication: PULMONARY ARTERIAL HYPERTENSION
     Dosage: 125 MG, BID
     Route: 048
     Dates: start: 20100604
  2. TRACLEER [Suspect]
     Dosage: 62.5 MG, QD
     Route: 048
  3. TRACLEER [Suspect]
     Dosage: 31.25 MG, QD
     Route: 048
     Dates: end: 20100803

REACTIONS (2)
  - CARDIAC FAILURE [None]
  - CONDITION AGGRAVATED [None]
